FAERS Safety Report 4597251-2 (Version None)
Quarter: 2005Q1

REPORT INFORMATION
  Report Type: 
  Country: None (occurrence: None)
  Receive Date: 20050301
  Receipt Date: 20050217
  Transmission Date: 20050727
  Serious: Yes (Hospitalization, Other)
  Sender: FDA-Public Use
  Company Number: 2005024946

PATIENT
  Age: 86 Year
  Sex: Female
  Weight: 47 kg

DRUGS (11)
  1. NORPACE [Suspect]
     Indication: ILL-DEFINED DISORDER
     Dosage: 200 MG (100 MG, BID), ORAL
     Route: 048
     Dates: start: 20041110, end: 20041209
  2. MECOBALAMIN (MECOBALAMIN) [Concomitant]
  3. LIMAPROST (LIMAPROST) [Concomitant]
  4. CINAL (ASCORBIC ACID, CALCIUM PANTOTHENATE) [Concomitant]
  5. ASPIRIN [Concomitant]
  6. RANITIDINE HYDROCHLORIDE [Concomitant]
  7. LOSARTAN POTASSIUM [Concomitant]
  8. PRAVASTATIN SODIUM [Concomitant]
  9. CALCIUM CARBONATE (CALCIUM CARBONATE) [Concomitant]
  10. NIFEDIPINE [Concomitant]
  11. FUROSEMIDE [Concomitant]

REACTIONS (12)
  - ABNORMAL FAECES [None]
  - APNOEA [None]
  - BLOOD PRESSURE SYSTOLIC INCREASED [None]
  - DEPRESSED LEVEL OF CONSCIOUSNESS [None]
  - ENTEROCOLITIS [None]
  - EXTENSOR PLANTAR RESPONSE [None]
  - HAEMATEMESIS [None]
  - HYPOGLYCAEMIA [None]
  - RESTLESSNESS [None]
  - SNORING [None]
  - THERAPY NON-RESPONDER [None]
  - WEIGHT DECREASED [None]
